FAERS Safety Report 20496485 (Version 1)
Quarter: 2022Q1

REPORT INFORMATION
  Report Type: Spontaneous
  Country: US (occurrence: US)
  Receive Date: 20220221
  Receipt Date: 20220221
  Transmission Date: 20220423
  Serious: No
  Sender: FDA-Public Use
  Company Number: US-BAXTER-2022BAX003324

PATIENT

DRUGS (2)
  1. NEXTERONE [Suspect]
     Active Substance: AMIODARONE HYDROCHLORIDE
     Indication: Product used for unknown indication
     Dosage: 360MG/200ML
     Route: 065
  2. INSULIN HUMAN [Suspect]
     Active Substance: INSULIN HUMAN
     Indication: Product used for unknown indication
     Dosage: 100 UNITS/100ML?33 UNITS/HOUR
     Route: 065
     Dates: start: 20220208

REACTIONS (2)
  - Blood glucose abnormal [Unknown]
  - Wrong product administered [Unknown]

NARRATIVE: CASE EVENT DATE: 20220208
